FAERS Safety Report 9382931 (Version 2)
Quarter: 2014Q1

REPORT INFORMATION
  Report Type: Report from Study
  Country: FR (occurrence: FR)
  Receive Date: 20130703
  Receipt Date: 20140321
  Transmission Date: 20141002
  Serious: Yes (Death, Hospitalization)
  Sender: FDA-Public Use
  Company Number: FR-TEVA-416568ISR

PATIENT
  Age: 56 Year
  Sex: Female

DRUGS (3)
  1. EFFENTORA [Suspect]
     Indication: PRODUCT USED FOR UNKNOWN INDICATION
     Route: 002
  2. DUROGESIC [Concomitant]
     Indication: PAIN
     Dates: start: 20130515, end: 20130605
  3. OXYCONTIN [Concomitant]
     Indication: PAIN
     Dosage: 60 MILLIGRAM DAILY;
     Route: 048
     Dates: start: 20130605

REACTIONS (2)
  - Organ failure [Fatal]
  - Neoplasm progression [Fatal]
